FAERS Safety Report 5342458-X (Version None)
Quarter: 2007Q2

REPORT INFORMATION
  Report Type: 
  Country: None (occurrence: None)
  Receive Date: 20070601
  Receipt Date: 20070521
  Transmission Date: 20071010
  Serious: Yes (Other)
  Sender: FDA-Public Use
  Company Number: US-PFIZER INC-2006150108

PATIENT
  Sex: Female
  Weight: 77.1 kg

DRUGS (30)
  1. LOPID [Suspect]
     Indication: BLOOD CHOLESTEROL INCREASED
     Route: 048
     Dates: start: 20061201, end: 20061201
  2. LOPID [Suspect]
     Indication: BLOOD TRIGLYCERIDES INCREASED
  3. LIDODERM [Concomitant]
     Route: 061
  4. DURAGESIC-100 [Concomitant]
     Route: 061
  5. SPIRIVA [Concomitant]
  6. FLOVENT [Concomitant]
     Route: 055
  7. ALBUTEROL [Concomitant]
     Route: 055
  8. PRILOSEC [Concomitant]
  9. ERYTHROMYCIN [Concomitant]
  10. NEURONTIN [Concomitant]
  11. POTASSIUM ACETATE [Concomitant]
  12. INDERAL [Concomitant]
  13. RESTORIL [Concomitant]
  14. PLAVIX [Concomitant]
  15. VARENICLINE [Concomitant]
  16. EPINEPHRINE [Concomitant]
  17. NITROGLYCERIN [Concomitant]
  18. LYRICA [Concomitant]
  19. EVISTA [Concomitant]
  20. PROMETHAZINE HCL [Concomitant]
  21. KEPPRA [Concomitant]
  22. LASIX [Concomitant]
  23. EFFEXOR [Concomitant]
  24. ZANAFLEX [Concomitant]
  25. FIORICET [Concomitant]
  26. ATROVENT [Concomitant]
     Route: 055
  27. SPIRIVA [Concomitant]
     Route: 055
  28. PHENERGAN ^AVENTIS PHARMA^ [Concomitant]
  29. EFFEXOR XR [Concomitant]
  30. POTASSIUM CHLORIDE [Concomitant]

REACTIONS (5)
  - CHEST DISCOMFORT [None]
  - DYSPNOEA [None]
  - PHARYNGEAL OEDEMA [None]
  - SUFFOCATION FEELING [None]
  - WEIGHT INCREASED [None]
